FAERS Safety Report 7553821-0 (Version None)
Quarter: 2011Q2

REPORT INFORMATION
  Report Type: 
  Country: None (occurrence: None)
  Receive Date: 20110617
  Receipt Date: 20110613
  Transmission Date: 20111010
  Serious: Yes (Disabling)
  Sender: FDA-Public Use
  Company Number: GB-SANOFI-AVENTIS-2011SA034848

PATIENT
  Sex: Female

DRUGS (2)
  1. ENOXAPARIN SODIUM [Suspect]
     Route: 065
  2. PREDNISOLONE [Concomitant]

REACTIONS (2)
  - MYALGIA [None]
  - OEDEMA PERIPHERAL [None]
